FAERS Safety Report 7562990-8 (Version None)
Quarter: 2011Q2

REPORT INFORMATION
  Report Type: 
  Country: None (occurrence: None)
  Receive Date: 20110622
  Receipt Date: 20100922
  Transmission Date: 20111010
  Serious: Yes (Death, Hospitalization)
  Sender: FDA-Public Use
  Company Number: AU-AMGEN-QUU429999

PATIENT
  Age: 70 Year

DRUGS (24)
  1. ALLOPURINOL [Concomitant]
     Dosage: 100 MG, QD
  2. METOCLOPRAMIDE [Concomitant]
     Dosage: 10 MG, TID
  3. DOXEPIN [Concomitant]
     Dosage: 25 MG, QD
  4. SANDRENA [Concomitant]
     Dosage: 1 MG/G, UNK
  5. MINOXIDIL [Concomitant]
     Dosage: 10 MG, BID
  6. ATENOLOL [Concomitant]
     Dosage: 50 MG, BID
  7. CALCIUM CARBONATE [Concomitant]
     Dosage: 600 MG, QD
  8. ERYTHROPOETIN [Concomitant]
     Dosage: 8000 UNIT, UNK
  9. HALOPERIDOL [Concomitant]
     Dosage: 0.5 MG, UNK
  10. FENTANYL [Concomitant]
     Dosage: 25 A?G, UNK
  11. RABEPRAZOLE SODIUM [Concomitant]
     Dosage: 40 MG, QD
  12. MAGNESIUM ASPARTATE [Concomitant]
     Dosage: 1000 MG, QD
  13. SODIUM BICARBONATE [Concomitant]
     Dosage: 840 MG, BID
  14. FOLIC ACID [Concomitant]
     Dosage: 0.5 MG, QD
  15. ROPINIROLE [Concomitant]
     Dosage: 0.5 MG, QD
  16. OXYCODONE HCL [Concomitant]
     Dosage: UNK UNK, PRN
  17. COLOXYL WITH SENNA [Concomitant]
     Dosage: UNK UNK, QD
  18. FUROSEMIDE [Concomitant]
     Dosage: 40 MG, PRN
  19. NPLATE [Suspect]
     Indication: IDIOPATHIC THROMBOCYTOPENIC PURPURA
  20. SERTRALINE HYDROCHLORIDE [Concomitant]
     Dosage: 50 MG, QD
  21. SERETIDE [Concomitant]
     Dosage: UNK UNK, BID
  22. CHOLECALCIFEROL [Concomitant]
     Dosage: 25 A?G, QD
  23. ACETAMINOPHEN [Concomitant]
     Dosage: 1000 MG, QID
  24. PREDNISOLONE [Concomitant]
     Dosage: 5 MG, UNK

REACTIONS (5)
  - HAEMOLYSIS [None]
  - RENAL FAILURE [None]
  - DECREASED APPETITE [None]
  - NAUSEA [None]
  - ABDOMINAL PAIN [None]
